FAERS Safety Report 8802096 (Version 1)
Quarter: 2012Q4

REPORT INFORMATION
  Report Type: 
  Country: US (occurrence: US)
  Receive Date: 20120921
  Receipt Date: 20120921
  Transmission Date: 20130627
  Serious: No
  Sender: FDA-Public Use
  Company Number: US-BAYER-2012-098429

PATIENT

DRUGS (2)
  1. ALEVE CAPLET/TABLET,MIDOL EXTENDED RELIEF CAPLET [Suspect]
     Dosage: 3 DF, QD
     Route: 048
     Dates: start: 20120917
  2. TYLENOL NOS [Concomitant]
     Dosage: 2 UNK, UNK
     Dates: start: 20120917

REACTIONS (1)
  - No adverse event [None]
